FAERS Safety Report 6416975-5 (Version None)
Quarter: 2009Q4

REPORT INFORMATION
  Report Type: 
  Country: None (occurrence: None)
  Receive Date: 20091023
  Receipt Date: 20091012
  Transmission Date: 20100525
  Serious: Yes (Other)
  Sender: FDA-Public Use
  Company Number: 2009011442

PATIENT
  Age: 62 Year
  Sex: Male

DRUGS (1)
  1. MODAFINIL [Suspect]
     Indication: NARCOLEPSY
     Dosage: 100 MG (100 MG, 1 IN 1 D), ORAL
     Route: 048
     Dates: start: 20090701

REACTIONS (12)
  - ASTHENIA [None]
  - DYSGEUSIA [None]
  - ECCHYMOSIS [None]
  - FALL [None]
  - GAMMA-GLUTAMYLTRANSFERASE INCREASED [None]
  - LIVER FUNCTION TEST ABNORMAL [None]
  - OEDEMA PERIPHERAL [None]
  - ORAL DYSAESTHESIA [None]
  - PAIN [None]
  - SKELETAL INJURY [None]
  - SKIN LESION [None]
  - VERTIGO [None]
